FAERS Safety Report 10241159 (Version 2)
Quarter: 2014Q3

REPORT INFORMATION
  Report Type: Spontaneous
  Country: US (occurrence: US)
  Receive Date: 20140617
  Receipt Date: 20140731
  Transmission Date: 20150326
  Serious: No
  Sender: FDA-Public Use
  Company Number: US-PFIZER INC-2014164162

PATIENT
  Age: 48 Year
  Sex: Female
  Weight: 70.8 kg

DRUGS (2)
  1. PREMARIN [Suspect]
     Active Substance: ESTROGENS, CONJUGATED
     Dosage: UNK, DAILY
     Route: 067
     Dates: start: 201404
  2. PREMARIN [Suspect]
     Active Substance: ESTROGENS, CONJUGATED
     Dosage: UNK, DAILY
     Route: 067
     Dates: end: 2014

REACTIONS (6)
  - Back pain [Unknown]
  - Diplopia [Unknown]
  - Migraine [Unknown]
  - Vision blurred [Unknown]
  - Vulvovaginal pain [Unknown]
  - Dyspareunia [Unknown]

NARRATIVE: CASE EVENT DATE: 201404
